FAERS Safety Report 14923620 (Version 1)
Quarter: 2018Q2

REPORT INFORMATION
  Report Type: Spontaneous
  Country: US (occurrence: US)
  Receive Date: 20180522
  Receipt Date: 20180522
  Transmission Date: 20180711
  Serious: No
  Sender: FDA-Public Use
  Company Number: US-PERRIGO-17US027049

PATIENT
  Age: 11 Month
  Sex: Female

DRUGS (1)
  1. ACETAMINOPHEN. [Suspect]
     Active Substance: ACETAMINOPHEN
     Indication: PRODUCT USED FOR UNKNOWN INDICATION
     Dosage: UNKNOWN, UNKNOWN
     Route: 054
     Dates: start: 201709

REACTIONS (2)
  - Drug administered to patient of inappropriate age [Unknown]
  - Rash [Unknown]

NARRATIVE: CASE EVENT DATE: 201709
